FAERS Safety Report 9981768 (Version 1)
Quarter: 2014Q1

REPORT INFORMATION
  Report Type: Spontaneous
  Country: US (occurrence: None)
  Receive Date: 20140306
  Receipt Date: 20140306
  Transmission Date: 20141002
  Serious: No
  Sender: FDA-Public Use
  Company Number: None

PATIENT
  Age: 45 Year
  Sex: Male
  Weight: 79.38 kg

DRUGS (3)
  1. ALOXI [Suspect]
     Indication: CHEMOTHERAPY
     Dosage: 0.25 MG WEEKLY PRIOR TO CH INTRAVENOUS
     Dates: start: 20140303, end: 20140303
  2. DIPHENDYRAMINE [Concomitant]
  3. SOLU-CORTEF [Concomitant]

REACTIONS (2)
  - Chest discomfort [None]
  - Dyspnoea [None]
